FAERS Safety Report 6098746-5 (Version None)
Quarter: 2009Q1

REPORT INFORMATION
  Report Type: 
  Country: None (occurrence: None)
  Receive Date: 20090302
  Receipt Date: 20090224
  Transmission Date: 20090719
  Serious: Yes (Other)
  Sender: FDA-Public Use
  Company Number: TW-ASTRAZENECA-2009AP01496

PATIENT
  Age: 25 Year
  Sex: Female

DRUGS (1)
  1. MARCAINE [Suspect]
     Indication: CAESAREAN SECTION
     Dosage: 3CC STAT
     Route: 037
     Dates: start: 20090221, end: 20090221

REACTIONS (1)
  - ANAPHYLACTIC REACTION [None]
